FAERS Safety Report 12615961 (Version 1)
Quarter: 2016Q3

REPORT INFORMATION
  Report Type: Spontaneous
  Country: IT (occurrence: IT)
  Receive Date: 20160802
  Receipt Date: 20160802
  Transmission Date: 20161109
  Serious: Yes (Hospitalization)
  Sender: FDA-Public Use
  Company Number: IT-MYLANLABS-2016M1031352

PATIENT

DRUGS (2)
  1. ASCRIPTIN [Concomitant]
     Active Substance: ASPIRIN
     Indication: PRODUCT USED FOR UNKNOWN INDICATION
     Dosage: UNK
     Route: 048
  2. FUROSEMIDE. [Suspect]
     Active Substance: FUROSEMIDE
     Indication: GRAVITATIONAL OEDEMA
     Dosage: 125 MG, QD
     Route: 048
     Dates: start: 20160501, end: 20160606

REACTIONS (4)
  - Overdose [Unknown]
  - Hypokalaemia [Unknown]
  - Acute kidney injury [Unknown]
  - Metabolic alkalosis [Unknown]

NARRATIVE: CASE EVENT DATE: 20160606
